FAERS Safety Report 5385346-5 (Version None)
Quarter: 2007Q3

REPORT INFORMATION
  Report Type: 
  Country: None (occurrence: None)
  Receive Date: 20070709
  Receipt Date: 20070709
  Transmission Date: 20080115
  Serious: Yes (Hospitalization, Other)
  Sender: FDA-Public Use
  Company Number: None

PATIENT
  Age: 56 Year
  Sex: Female
  Weight: 92.9874 kg

DRUGS (1)
  1. LOVENOX [Suspect]
     Indication: HEPARIN NEUTRALISATION THERAPY
     Dosage: 1 ML. TWICE PER DAY SQ
     Route: 058

REACTIONS (4)
  - IMPAIRED HEALING [None]
  - INCISION SITE COMPLICATION [None]
  - INJECTION SITE HAEMATOMA [None]
  - PHARMACEUTICAL PRODUCT COMPLAINT [None]
